FAERS Safety Report 17468940 (Version 1)
Quarter: 2020Q1

REPORT INFORMATION
  Report Type: Spontaneous
  Country: US (occurrence: US)
  Receive Date: 20200217
  Receipt Date: 20200217
  Transmission Date: 20200409
  Serious: Yes (Death)
  Sender: FDA-Public Use
  Company Number: None

PATIENT
  Age: 44 Year
  Sex: Female

DRUGS (7)
  1. VOTRIENT [Suspect]
     Active Substance: PAZOPANIB HYDROCHLORIDE
     Indication: UTERINE CANCER
     Route: 048
  2. TERBINAFINE. [Concomitant]
     Active Substance: TERBINAFINE
  3. SENNA/DOCUSATE [Concomitant]
  4. OLANZAPINE. [Concomitant]
     Active Substance: OLANZAPINE
  5. ONDANSETRON [Concomitant]
     Active Substance: ONDANSETRON
  6. IBUPROFEN. [Concomitant]
     Active Substance: IBUPROFEN
  7. RANITIDINE. [Concomitant]
     Active Substance: RANITIDINE

REACTIONS (1)
  - Death [None]
